FAERS Safety Report 9818598 (Version 1)
Quarter: 2014Q1

REPORT INFORMATION
  Report Type: Report from Study
  Country: FR (occurrence: FR)
  Receive Date: 20140115
  Receipt Date: 20140115
  Transmission Date: 20141002
  Serious: Yes (Death)
  Sender: FDA-Public Use
  Company Number: FR-SA-2014SA004920

PATIENT
  Age: 85 Year
  Sex: Male

DRUGS (12)
  1. AFLIBERCEPT [Suspect]
     Indication: COLORECTAL CANCER METASTATIC
     Route: 042
     Dates: start: 20131118, end: 20131118
  2. AFLIBERCEPT [Suspect]
     Indication: COLORECTAL CANCER METASTATIC
     Route: 042
     Dates: start: 20131217, end: 20131217
  3. OXALIPLATIN [Suspect]
     Indication: COLORECTAL CANCER METASTATIC
     Route: 042
     Dates: start: 20131118, end: 20131118
  4. OXALIPLATIN [Suspect]
     Indication: COLORECTAL CANCER METASTATIC
     Route: 042
     Dates: start: 20131217, end: 20131217
  5. 5-FU [Suspect]
     Indication: COLORECTAL CANCER METASTATIC
     Route: 041
     Dates: start: 20131118, end: 20131118
  6. 5-FU [Suspect]
     Indication: COLORECTAL CANCER METASTATIC
     Route: 041
     Dates: start: 20131217, end: 20131217
  7. LEUCOVORIN [Suspect]
     Indication: COLORECTAL CANCER METASTATIC
     Route: 042
     Dates: start: 20131118, end: 20131118
  8. LEUCOVORIN [Suspect]
     Indication: COLORECTAL CANCER METASTATIC
     Route: 042
     Dates: start: 20131217, end: 20131217
  9. SMECTA [Concomitant]
  10. CODEINE PHOSPHATE/PARACETAMOL [Concomitant]
  11. TEMERIT [Concomitant]
     Route: 048
  12. ADENURIC [Concomitant]
     Route: 048

REACTIONS (1)
  - Cerebral ischaemia [Fatal]
